FAERS Safety Report 7981566-1 (Version None)
Quarter: 2011Q4

REPORT INFORMATION
  Report Type: 
  Country: None (occurrence: None)
  Receive Date: 20111215
  Receipt Date: 20111208
  Transmission Date: 20120403
  Serious: Yes (Hospitalization)
  Sender: FDA-Public Use
  Company Number: US-ABBOTT-11P-163-0881786-00

PATIENT
  Sex: Male

DRUGS (11)
  1. METOPROLOL TARTRATE [Concomitant]
     Indication: HYPERTENSION
  2. AMARYL [Concomitant]
     Indication: DIABETES MELLITUS
  3. CILOSTAZOL [Concomitant]
     Indication: PRODUCT USED FOR UNKNOWN INDICATION
  4. QUINAPRIL [Concomitant]
     Indication: HYPERTENSION
  5. ASPIRIN [Concomitant]
     Indication: CARDIAC DISORDER
  6. METFORMIN HCL [Concomitant]
     Indication: DIABETES MELLITUS
  7. SIMVASTATIN [Concomitant]
     Indication: BLOOD CHOLESTEROL INCREASED
  8. LOSARTAN POTASSIUM [Concomitant]
     Indication: HYPERTENSION
  9. ASPIRIN [Concomitant]
     Indication: PROPHYLAXIS
  10. HUMIRA [Suspect]
     Indication: PSORIASIS
     Dates: end: 20111001
  11. CARDIZEM [Concomitant]
     Indication: HYPERTENSION

REACTIONS (3)
  - ANTIPHOSPHOLIPID ANTIBODIES POSITIVE [None]
  - PULMONARY EMBOLISM [None]
  - ANTINUCLEAR ANTIBODY POSITIVE [None]
